FAERS Safety Report 5205954-1 (Version None)
Quarter: 2007Q1

REPORT INFORMATION
  Report Type: 
  Country: None (occurrence: None)
  Receive Date: 20070111
  Receipt Date: 20070110
  Transmission Date: 20070707
  Serious: Yes (Hospitalization)
  Sender: FDA-Public Use
  Company Number: DE-GLAXOSMITHKLINE-D0051916A

PATIENT
  Age: 33 Year
  Sex: Male
  Weight: 100 kg

DRUGS (1)
  1. QUILONORM RETARD [Suspect]
     Dosage: 2475MG PER DAY
     Route: 048

REACTIONS (6)
  - BLOOD CREATININE INCREASED [None]
  - BRADYKINESIA [None]
  - DRUG TOXICITY [None]
  - FATIGUE [None]
  - RENAL FAILURE [None]
  - TREMOR [None]
